FAERS Safety Report 26151300 (Version 2)
Quarter: 2025Q4

REPORT INFORMATION
  Report Type: Spontaneous
  Country: EU (occurrence: None)
  Receive Date: 20251212
  Receipt Date: 20251222
  Transmission Date: 20260118
  Serious: No
  Sender: UCB
  Company Number: EU-UCBSA-2025078610

PATIENT

DRUGS (1)
  1. NEUPRO [Suspect]
     Active Substance: ROTIGOTINE
     Indication: Parkinson^s disease
     Dosage: 6 MILLIGRAM, ONCE DAILY (QD)

REACTIONS (4)
  - Tremor [Unknown]
  - Product adhesion issue [Unknown]
  - Product dose omission issue [Unknown]
  - Drug ineffective [Unknown]
